FAERS Safety Report 6393414-4 (Version None)
Quarter: 2009Q4

REPORT INFORMATION
  Report Type: 
  Country: None (occurrence: None)
  Receive Date: 20091008
  Receipt Date: 20090929
  Transmission Date: 20100525
  Serious: Yes (Other)
  Sender: FDA-Public Use
  Company Number: BR-ASTRAZENECA-2009SE17174

PATIENT
  Age: 59 Year
  Sex: Female
  Weight: 66 kg

DRUGS (7)
  1. CRESTOR [Suspect]
     Route: 048
     Dates: start: 20070101
  2. CRESTOR [Suspect]
     Route: 048
  3. PANTOPRAZOLE SODIUM [Concomitant]
     Indication: GASTROOESOPHAGEAL REFLUX DISEASE
     Route: 048
     Dates: start: 20050101
  4. DIOVAN [Concomitant]
     Indication: HYPERTENSION
     Route: 048
     Dates: start: 20050101
  5. NATRILIX SR [Concomitant]
     Indication: HYPERTENSION
     Route: 048
     Dates: start: 20050101
  6. INSULIN 40 U [Concomitant]
     Indication: DIABETES MELLITUS
     Dosage: 40 AT MORNING, 16 AT NIGHT
     Route: 058
     Dates: start: 20070101
  7. BUFERIN CARDIO [Concomitant]
     Indication: HYPERTENSION
     Dosage: PRN
     Route: 048
     Dates: start: 20060101

REACTIONS (5)
  - HERPES ZOSTER [None]
  - HYPOAESTHESIA [None]
  - RETINOPATHY [None]
  - TOOTH FRACTURE [None]
  - WEIGHT DECREASED [None]
